FAERS Safety Report 4696874-X (Version None)
Quarter: 2005Q2

REPORT INFORMATION
  Report Type: 
  Country: None (occurrence: None)
  Receive Date: 20050622
  Receipt Date: 20050415
  Transmission Date: 20051028
  Serious: Yes (Other)
  Sender: FDA-Public Use
  Company Number: PHBS2005BR05468

PATIENT
  Age: 79 Year
  Sex: Female
  Weight: 60 kg

DRUGS (4)
  1. FORADIL [Suspect]
     Indication: DYSPNOEA
     Dates: end: 20050301
  2. FORADIL [Suspect]
     Dates: start: 20050401
  3. FORASEQ [Suspect]
     Indication: DYSPNOEA
     Dosage: 12 FORM - 400 BUDE UG/BID
     Dates: start: 20050328, end: 20050331
  4. EUPRESSIN [Concomitant]
     Indication: HYPERTENSION
     Dosage: 1 TAB/DAY
     Route: 048

REACTIONS (2)
  - DYSPNOEA [None]
  - VAGINAL HAEMORRHAGE [None]
